FAERS Safety Report 9907485 (Version 3)
Quarter: 2014Q2

REPORT INFORMATION
  Report Type: Spontaneous
  Country: US (occurrence: US)
  Receive Date: 20140218
  Receipt Date: 20140423
  Transmission Date: 20141212
  Serious: Yes (Death, Hospitalization, Other)
  Sender: FDA-Public Use
  Company Number: US-BAXTER-2014BAX007188

PATIENT
  Sex: Female

DRUGS (1)
  1. DIANEAL LOW CALCIUM [Suspect]
     Indication: RENAL FAILURE
     Route: 033
     Dates: end: 20140404

REACTIONS (7)
  - Death [Fatal]
  - Pelvic fracture [Not Recovered/Not Resolved]
  - Pneumonia [Recovering/Resolving]
  - Fall [Unknown]
  - Joint injury [Unknown]
  - Dysphagia [Recovering/Resolving]
  - Hypotension [Recovering/Resolving]
